FAERS Safety Report 9313573 (Version 2)
Quarter: 2013Q3

REPORT INFORMATION
  Report Type: Spontaneous
  Country: US (occurrence: US)
  Receive Date: 20130528
  Receipt Date: 20130911
  Transmission Date: 20140515
  Serious: No
  Sender: FDA-Public Use
  Company Number: US-ASTRAZENECA-2013SE34565

PATIENT
  Sex: Male

DRUGS (1)
  1. ANASTROZOLE [Suspect]
     Dosage: 0.5 MG, UNKNOWN FREQUENCY, GENERIC
     Route: 048

REACTIONS (7)
  - Epistaxis [Unknown]
  - Nasal dryness [Unknown]
  - Nasal disorder [Unknown]
  - Tongue ulceration [Unknown]
  - Oral fungal infection [Unknown]
  - Sleep disorder [Unknown]
  - Off label use [Unknown]
